FAERS Safety Report 6236258-6 (Version None)
Quarter: 2009Q2

REPORT INFORMATION
  Report Type: 
  Country: None (occurrence: None)
  Receive Date: 20090619
  Receipt Date: 20090611
  Transmission Date: 20091009
  Serious: Yes (Hospitalization)
  Sender: FDA-Public Use
  Company Number: IT-SANOFI-SYNTHELABO-A01200906342

PATIENT
  Sex: Male

DRUGS (8)
  1. ANDROCUR [Suspect]
     Indication: PROSTATE CANCER
     Dosage: 100 MG
     Route: 048
     Dates: start: 20090514, end: 20090527
  2. OLANZAPINE [Concomitant]
     Dosage: UNK
  3. RAMIPRIL [Concomitant]
     Dosage: UNK
  4. ACETYLSALICYLIC ACID [Concomitant]
     Dosage: UNK
  5. OMEPRAZOLE SODIUM [Concomitant]
     Dosage: UNK
  6. SERTRALINE [Concomitant]
     Dosage: UNK
  7. ALFUZOSIN HCL [Concomitant]
     Dosage: UNK
  8. ELIGARD [Suspect]
     Indication: PROSTATE CANCER
     Dosage: 22.5 MG
     Route: 058
     Dates: start: 20090514, end: 20090514

REACTIONS (2)
  - PULMONARY EMBOLISM [None]
  - PULMONARY INFARCTION [None]
